FAERS Safety Report 6251531-3 (Version None)
Quarter: 2009Q2

REPORT INFORMATION
  Report Type: 
  Country: None (occurrence: None)
  Receive Date: 20090626
  Receipt Date: 20090626
  Transmission Date: 20091009
  Serious: Yes (Disabling)
  Sender: FDA-Public Use
  Company Number: None

PATIENT
  Sex: Male
  Weight: 86.4 kg

DRUGS (1)
  1. ZICAM EXTREME CONGESTION MATRIXX INITIATIVES [Suspect]
     Indication: NASAL CONGESTION
     Dates: start: 20080101, end: 20090101

REACTIONS (2)
  - AGEUSIA [None]
  - ANOSMIA [None]
